FAERS Safety Report 8857620 (Version 1)
Quarter: 2012Q4

REPORT INFORMATION
  Report Type: Report from Study
  Country: CA (occurrence: CA)
  Receive Date: 20121024
  Receipt Date: 20121024
  Transmission Date: 20130627
  Serious: Yes (Other)
  Sender: FDA-Public Use
  Company Number: CA-JNJFOC-20121009515

PATIENT
  Age: 43 Year
  Sex: Male

DRUGS (6)
  1. STELARA [Suspect]
     Indication: PSORIASIS
     Route: 058
     Dates: start: 20120727
  2. METHOTREXATE [Concomitant]
     Route: 058
  3. PANTOLOC [Concomitant]
     Route: 048
  4. FOLIC ACID [Concomitant]
     Route: 048
  5. TYLENOL [Concomitant]
  6. FLEXERIL [Concomitant]

REACTIONS (2)
  - Road traffic accident [Unknown]
  - Medical device implantation [Unknown]
